FAERS Safety Report 8131050 (Version 3)
Quarter: 2012Q4

REPORT INFORMATION
  Report Type: 
  Country: US (occurrence: US)
  Receive Date: 20110912
  Receipt Date: 20121023
  Transmission Date: 20130627
  Serious: Yes (Hospitalization, Other)
  Sender: FDA-Public Use
  Company Number: US-BAYER-2011-081789

PATIENT
  Age: 17 Year
  Sex: Female
  Weight: 61 kg

DRUGS (6)
  1. YAZ [Suspect]
     Indication: CONTRACEPTION
     Dosage: UNK
     Route: 048
     Dates: start: 200809, end: 200909
  2. YAZ [Suspect]
     Indication: MENSTRUATION IRREGULAR
  3. CANNABIS SATIVA SUBSP. INDICA TOP [Concomitant]
  4. HASHISH [Concomitant]
  5. ASTHMA/BREATHING MEDICATIONS [Concomitant]
     Dosage: UNK
  6. NSAID^S [Concomitant]
     Dosage: UNK

REACTIONS (9)
  - Gallbladder injury [None]
  - Vomiting [None]
  - Diarrhoea [None]
  - Decreased appetite [None]
  - Gastric disorder [None]
  - Scar [None]
  - Gastrooesophageal reflux disease [None]
  - Cholecystitis chronic [None]
  - Biliary dyskinesia [None]
